FAERS Safety Report 5001124-0 (Version None)
Quarter: 2006Q2

REPORT INFORMATION
  Report Type: 
  Country: None (occurrence: None)
  Receive Date: 20060512
  Receipt Date: 20060502
  Transmission Date: 20061013
  Serious: Yes (Hospitalization)
  Sender: FDA-Public Use
  Company Number: 2006CG00776

PATIENT
  Age: 72 Year
  Sex: Male

DRUGS (6)
  1. MOPRAL [Suspect]
     Route: 048
  2. CORTANCYL [Suspect]
     Route: 048
  3. MESTINON [Suspect]
     Route: 048
  4. MOTILIUM [Suspect]
     Route: 048
  5. CELLCEPT [Suspect]
     Route: 048
  6. TRAMADOL HCL [Suspect]
     Route: 048

REACTIONS (1)
  - RETROPERITONEAL FIBROSIS [None]
